FAERS Safety Report 7621192 (Version 3)
Quarter: 2013Q4

REPORT INFORMATION
  Report Type: Spontaneous
  Country: US (occurrence: US)
  Receive Date: 20101008
  Receipt Date: 20131230
  Transmission Date: 20140711
  Serious: Yes (Other)
  Sender: FDA-Public Use
  Company Number: US-BAYER-201035909NA

PATIENT
  Age: 33 Year
  Sex: Female
  Weight: 60.32 kg

DRUGS (3)
  1. YAZ [Suspect]
     Dosage: UNK
     Route: 048
     Dates: start: 2001, end: 200909
  2. YASMIN [Suspect]
     Dosage: UNK
     Route: 048
     Dates: start: 2001, end: 200909
  3. INDERAL [Concomitant]
     Indication: PHAEOCHROMOCYTOMA
     Dosage: 10 MG, AS NEEDED
     Dates: start: 20090909

REACTIONS (6)
  - Gallbladder disorder [Unknown]
  - Biliary dyskinesia [None]
  - Cholecystitis [None]
  - Cholecystitis chronic [None]
  - Gallbladder non-functioning [None]
  - Vomiting [Unknown]
